FAERS Safety Report 10232804 (Version 1)
Quarter: 2014Q2

REPORT INFORMATION
  Report Type: Report from Study
  Country: US (occurrence: US)
  Receive Date: 20140612
  Receipt Date: 20140612
  Transmission Date: 20141212
  Serious: Yes (Hospitalization)
  Sender: FDA-Public Use
  Company Number: US-MALLINCKRODT-T201402456

PATIENT
  Age: 45 Year
  Sex: Male

DRUGS (6)
  1. OFIRMEV [Suspect]
     Indication: PRODUCT USED FOR UNKNOWN INDICATION
     Dosage: UNK
     Route: 065
  2. ABATACEPT [Suspect]
     Indication: RHEUMATOID ARTHRITIS
     Dosage: 125 MILLIGRAM
     Route: 058
     Dates: start: 20140401
  3. SOLU MEDROL [Concomitant]
  4. RAYZON [Concomitant]
  5. TRAMAL [Concomitant]
  6. LIORESAL [Concomitant]

REACTIONS (1)
  - Rheumatoid arthritis [Recovered/Resolved]
